FAERS Safety Report 7189340-3 (Version None)
Quarter: 2010Q4

REPORT INFORMATION
  Report Type: 
  Country: None (occurrence: None)
  Receive Date: 20101222
  Receipt Date: 20100819
  Transmission Date: 20110411
  Serious: Yes (Hospitalization)
  Sender: FDA-Public Use
  Company Number: US-AMGEN-KDL429572

PATIENT

DRUGS (8)
  1. ENBREL [Suspect]
     Indication: RHEUMATOID ARTHRITIS
     Dosage: 25 MG, 2 TIMES/WK
     Route: 058
     Dates: start: 20071201
  2. METHOTREXATE [Concomitant]
     Dosage: 20 MG, QWK
     Route: 048
     Dates: start: 20050901
  3. TOPROL-XL [Concomitant]
     Dosage: UNK UNK, UNK
     Route: 048
  4. BUPROPION [Concomitant]
     Dosage: UNK UNK, UNK
     Route: 048
  5. ATORVASTATIN CALCIUM [Concomitant]
     Dosage: UNK UNK, UNK
     Route: 048
  6. METFORMIN [Concomitant]
     Dosage: UNK UNK, UNK
     Route: 048
  7. LISINOPRIL [Concomitant]
     Dosage: UNK UNK, UNK
     Route: 048
  8. SITAGLIPTIN [Concomitant]

REACTIONS (7)
  - ARTHRALGIA [None]
  - BURNING SENSATION [None]
  - DIVERTICULITIS [None]
  - INJECTION SITE PAIN [None]
  - JOINT STIFFNESS [None]
  - PAIN IN EXTREMITY [None]
  - PRODUCT QUALITY ISSUE [None]
